FAERS Safety Report 8109132 (Version 3)
Quarter: 2013Q4

REPORT INFORMATION
  Report Type: Spontaneous
  Country: US (occurrence: US)
  Receive Date: 20110826
  Receipt Date: 20131125
  Transmission Date: 20140711
  Serious: Yes (Hospitalization, Other)
  Sender: FDA-Public Use
  Company Number: US-BAYER-2011-075040

PATIENT
  Age: 22 Year
  Sex: Female
  Weight: 62.59 kg

DRUGS (14)
  1. YAZ [Suspect]
     Dosage: UNK
     Dates: start: 2004, end: 2009
  2. YASMIN [Suspect]
     Dosage: UNK
     Dates: start: 2004, end: 2009
  3. MIDRIN [Concomitant]
     Dosage: UNK
     Dates: start: 2004, end: 2008
  4. CEFUROXIME [Concomitant]
     Dosage: 500 MG, UNK
     Route: 048
  5. METHYLPREDNISOLONE [Concomitant]
     Dosage: 4 MG, UNK
     Route: 048
  6. ALPRAZOLAM [Concomitant]
     Dosage: 0.5 MG, UNK
     Route: 048
  7. SERTRALINE [Concomitant]
     Dosage: 25 MG, UNK
     Route: 048
  8. ONDANSETRON [Concomitant]
     Dosage: 4 MG, UNK
     Route: 048
  9. HYDROCODONE W/APAP [Concomitant]
     Dosage: 5-500 MG
     Route: 048
  10. CARAFATE [Concomitant]
     Indication: GALLBLADDER DISORDER
     Dosage: 10 ML, QID
     Route: 048
  11. ZOLOFT [Concomitant]
     Indication: DEPRESSION
     Dosage: UNK UNK, BID
     Route: 048
  12. ACIPHEX [Concomitant]
     Indication: GASTROOESOPHAGEAL REFLUX DISEASE
     Dosage: 20 MG, TID
     Route: 048
  13. VICODIN [Concomitant]
     Indication: PAIN
     Dosage: 5/500MG, PRN
     Route: 048
  14. ZOFRAN [Concomitant]
     Indication: VOMITING
     Dosage: 4 MG, PRN

REACTIONS (4)
  - Cholecystitis chronic [None]
  - Gallbladder injury [None]
  - Pain [None]
  - Injury [None]
